FAERS Safety Report 21518105 (Version 2)
Quarter: 2022Q4

REPORT INFORMATION
  Report Type: Report from Study
  Country: CA (occurrence: CA)
  Receive Date: 20221028
  Receipt Date: 20221119
  Transmission Date: 20230113
  Serious: Yes (Other)
  Sender: FDA-Public Use
  Company Number: CA-ABBVIE-4176081

PATIENT
  Sex: Female

DRUGS (1)
  1. SKYRIZI [Suspect]
     Active Substance: RISANKIZUMAB-RZAA
     Indication: Psoriasis
     Dosage: EVERY 12 WEEKS, FORM STRENGTH: 150 MG
     Route: 058
     Dates: start: 20211105

REACTIONS (2)
  - Arthritis infective [Unknown]
  - Arthritis infective [Unknown]
